FAERS Safety Report 4950952-6 (Version None)
Quarter: 2006Q1

REPORT INFORMATION
  Report Type: 
  Country: None (occurrence: None)
  Receive Date: 20060316
  Receipt Date: 20060307
  Transmission Date: 20060701
  Serious: Yes (Other)
  Sender: FDA-Public Use
  Company Number: USA-2006-0023750

PATIENT
  Age: 8 Year
  Sex: Male

DRUGS (3)
  1. CEFDITOREN PIVOXIL (SIMILAR TO NDA 21-222) (CEFDITOREN PIVOXIL) [Suspect]
     Indication: OTITIS MEDIA ACUTE
     Dosage: 180 MG, DAILY, ORAL
     Route: 048
     Dates: start: 20060225, end: 20060228
  2. MUCODYNE (CARBOCISTEINE) [Concomitant]
  3. TAMIFLU [Concomitant]

REACTIONS (3)
  - CONVULSION [None]
  - DEPRESSED LEVEL OF CONSCIOUSNESS [None]
  - HEADACHE [None]
